FAERS Safety Report 13988906 (Version 1)
Quarter: 2017Q3

REPORT INFORMATION
  Report Type: Other
  Country: GB (occurrence: CL)
  Receive Date: 20170919
  Receipt Date: 20170919
  Transmission Date: 20171128
  Serious: Yes (Hospitalization, Other)
  Sender: FDA-Public Use
  Company Number: CL-INTERNATIONAL MEDICATION SYSTEMS, LIMITED-2026897

PATIENT
  Age: 32 Year
  Sex: Female

DRUGS (1)
  1. MORPHINE [Suspect]
     Active Substance: MORPHINE
     Indication: ABDOMINAL PAIN LOWER
     Route: 042

REACTIONS (5)
  - Alanine aminotransferase increased [Recovered/Resolved]
  - Biliary colic [Recovered/Resolved]
  - Aspartate aminotransferase increased [Recovered/Resolved]
  - Gamma-glutamyltransferase increased [Recovered/Resolved]
  - Sphincter of Oddi dysfunction [Recovered/Resolved]
